FAERS Safety Report 20809407 (Version 1)
Quarter: 2022Q2

REPORT INFORMATION
  Report Type: Spontaneous
  Country: US (occurrence: US)
  Receive Date: 20220510
  Receipt Date: 20220510
  Transmission Date: 20220720
  Serious: No
  Sender: FDA-Public Use
  Company Number: US-PFIZER INC-202101039924

PATIENT
  Age: 48 Year
  Sex: Female

DRUGS (1)
  1. SOMAVERT [Suspect]
     Active Substance: PEGVISOMANT
     Indication: Acromegaly
     Dosage: 20 MG, 3 TIMES WEEKLY
     Route: 058
     Dates: start: 2015

REACTIONS (2)
  - Insulin-like growth factor increased [Unknown]
  - Off label use [Unknown]
